FAERS Safety Report 10083583 (Version 1)
Quarter: 2014Q2

REPORT INFORMATION
  Report Type: Spontaneous
  Country: US (occurrence: None)
  Receive Date: 20140416
  Receipt Date: 20140416
  Transmission Date: 20141212
  Serious: No
  Sender: FDA-Public Use
  Company Number: None

PATIENT
  Age: 64 Year
  Sex: Female
  Weight: 68.04 kg

DRUGS (2)
  1. TRAMADOL HCL [Suspect]
     Indication: PAIN
     Route: 048
     Dates: start: 20140413, end: 20140414
  2. TRAMADOL HCL [Suspect]
     Indication: ROAD TRAFFIC ACCIDENT
     Route: 048
     Dates: start: 20140413, end: 20140414

REACTIONS (9)
  - Abdominal discomfort [None]
  - Middle insomnia [None]
  - Hyperhidrosis [None]
  - Dizziness [None]
  - Asthenia [None]
  - Tremor [None]
  - Nausea [None]
  - Malaise [None]
  - Hypersomnia [None]
